FAERS Safety Report 8213794-4 (Version None)
Quarter: 2012Q1

REPORT INFORMATION
  Report Type: 
  Country: None (occurrence: None)
  Receive Date: 20120316
  Receipt Date: 20120307
  Transmission Date: 20120608
  Serious: Yes (Hospitalization)
  Sender: FDA-Public Use
  Company Number: US-BIOGENIDEC-2011BI013786

PATIENT
  Age: 55 Year
  Sex: Female

DRUGS (2)
  1. TYSABRI [Suspect]
     Indication: MULTIPLE SCLEROSIS
     Route: 042
     Dates: start: 20080326, end: 20110720
  2. TYSABRI [Suspect]
     Route: 042
     Dates: start: 20110927

REACTIONS (3)
  - PROCEDURAL HAEMORRHAGE [None]
  - DIVERTICULITIS [None]
  - FATIGUE [None]
